FAERS Safety Report 8899480 (Version 1)
Quarter: 2012Q4

REPORT INFORMATION
  Report Type: Report from Study
  Country: CA (occurrence: CA)
  Receive Date: 20121109
  Receipt Date: 20121109
  Transmission Date: 20130627
  Serious: Yes (Hospitalization)
  Sender: FDA-Public Use
  Company Number: CA-JNJFOC-20121100790

PATIENT
  Sex: Male
  Weight: 88.6 kg

DRUGS (6)
  1. REMICADE [Suspect]
     Indication: CROHN^S DISEASE
     Route: 042
     Dates: start: 20050620
  2. AVAPRO [Concomitant]
     Route: 065
  3. NORVASC [Concomitant]
     Route: 065
  4. METFORMIN [Concomitant]
     Route: 065
  5. METAMUCIL [Concomitant]
     Route: 065
  6. IMODIUM [Concomitant]
     Route: 065

REACTIONS (1)
  - Fistula [Unknown]
